FAERS Safety Report 7680398-1 (Version None)
Quarter: 2011Q3

REPORT INFORMATION
  Report Type: 
  Country: None (occurrence: None)
  Receive Date: 20110812
  Receipt Date: 20110805
  Transmission Date: 20111222
  Serious: Yes (Other)
  Sender: FDA-Public Use
  Company Number: US-BAYER-2011-071658

PATIENT
  Age: 15 Year
  Sex: Female
  Weight: 46.259 kg

DRUGS (4)
  1. OXYCODONE HCL [Concomitant]
  2. MOTRIN [Concomitant]
  3. ADVIL LIQUI-GELS [Concomitant]
  4. YAZ [Suspect]
     Indication: PREMENSTRUAL SYNDROME
     Dosage: UNK
     Dates: start: 20080801, end: 20091001

REACTIONS (2)
  - BILIARY DYSKINESIA [None]
  - ABDOMINAL PAIN [None]
